FAERS Safety Report 5212206-2 (Version None)
Quarter: 2006Q4

REPORT INFORMATION
  Report Type: 
  Country: None (occurrence: None)
  Receive Date: 20061115
  Receipt Date: 20051031
  Transmission Date: 20070319
  Serious: Yes (Other)
  Sender: FDA-Public Use
  Company Number: US-JNJFOC-20051001914

PATIENT
  Age: 42 Year
  Sex: Female
  Weight: 70.3075 kg

DRUGS (11)
  1. ELMIRON [Suspect]
     Indication: CYSTITIS INTERSTITIAL
     Dosage: 100 MG, 2 IN 1 DAY; ORAL
     Route: 048
     Dates: start: 20040108, end: 20050101
  2. VESICARE (URINARY ANTISPASMODICS) [Concomitant]
  3. SINGULAIR [Concomitant]
  4. PREVACID [Concomitant]
  5. SYNTHROID [Concomitant]
  6. LOMOTIL [Concomitant]
  7. DYAZIDE [Concomitant]
  8. XANAX [Concomitant]
  9. VICODIN [Concomitant]
  10. ATARAX [Concomitant]
  11. MULTIPLE SCLEROSIS MEDICATIONS (ALL OTHER THERAPEUTIC PRODUCTS) [Concomitant]

REACTIONS (1)
  - OPTIC NEURITIS [None]
